FAERS Safety Report 11721705 (Version 1)
Quarter: 2015Q4

REPORT INFORMATION
  Report Type: Report from Study
  Country: RO (occurrence: RO)
  Receive Date: 20151111
  Receipt Date: 20151111
  Transmission Date: 20160304
  Serious: Yes (Hospitalization)
  Sender: FDA-Public Use
  Company Number: RO-ASTRAZENECA-2015SE38995

PATIENT
  Age: 25279 Day
  Sex: Female

DRUGS (10)
  1. AZD6140 [Suspect]
     Active Substance: TICAGRELOR
     Indication: CARDIOVASCULAR EVENT PROPHYLAXIS
     Route: 048
     Dates: start: 20140407, end: 20140421
  2. CIPROFLOXACIN. [Concomitant]
     Active Substance: CIPROFLOXACIN
     Dates: start: 20150411, end: 20150417
  3. NORVASC [Concomitant]
     Active Substance: AMLODIPINE BESYLATE
     Indication: HYPERTENSION
     Dates: end: 20150406
  4. AMLODIPINE [Concomitant]
     Active Substance: AMLODIPINE BESYLATE
     Dates: start: 20150406, end: 20150418
  5. METOCLOPRAMID [Concomitant]
     Active Substance: METOCLOPRAMIDE
     Dates: start: 20150406, end: 20150406
  6. SERMION [Concomitant]
     Active Substance: NICERGOLINE
     Dates: start: 20150411, end: 20150418
  7. AZD6140 [Suspect]
     Active Substance: TICAGRELOR
     Indication: CARDIOVASCULAR EVENT PROPHYLAXIS
     Dosage: LODING DOSE
     Route: 048
     Dates: start: 20140406, end: 20140406
  8. PIRACETAM [Concomitant]
     Active Substance: PIRACETAM
     Dates: start: 20150406, end: 20150410
  9. SORTIS [Concomitant]
     Active Substance: ATORVASTATIN
     Dates: start: 20150406, end: 20150418
  10. TERTENSIF [Concomitant]
     Dates: start: 20150406, end: 20150418

REACTIONS (1)
  - Left ventricular failure [Recovered/Resolved]

NARRATIVE: CASE EVENT DATE: 20150412
